FAERS Safety Report 13649743 (Version 1)
Quarter: 2017Q2

REPORT INFORMATION
  Report Type: Spontaneous
  Country: US (occurrence: US)
  Receive Date: 20170613
  Receipt Date: 20170613
  Transmission Date: 20170830
  Serious: Yes (Other)
  Sender: FDA-Public Use
  Company Number: None

PATIENT
  Age: 63 Year
  Sex: Female

DRUGS (7)
  1. IMODIUM [Concomitant]
     Active Substance: LOPERAMIDE HYDROCHLORIDE
  2. AMLODIPINE [Concomitant]
     Active Substance: AMLODIPINE BESYLATE
  3. LONSURF [Suspect]
     Active Substance: TIPIRACIL HYDROCHLORIDE\TRIFLURIDINE
     Indication: NEOPLASM MALIGNANT
     Dosage: THREE 20MG DAILY ORALLY
     Route: 048
     Dates: start: 20170419
  4. DIAZEPAM. [Concomitant]
     Active Substance: DIAZEPAM
  5. ONDANSETRON [Concomitant]
     Active Substance: ONDANSETRON
  6. LOSARTAN. [Concomitant]
     Active Substance: LOSARTAN
  7. TYLENOL [Concomitant]
     Active Substance: ACETAMINOPHEN

REACTIONS (4)
  - Red blood cell count decreased [None]
  - Decreased appetite [None]
  - Abdominal pain [None]
  - Diarrhoea [None]
